FAERS Safety Report 11665246 (Version 1)
Quarter: 2015Q4

REPORT INFORMATION
  Report Type: Spontaneous
  Country: CH (occurrence: CH)
  Receive Date: 20151027
  Receipt Date: 20151027
  Transmission Date: 20160304
  Serious: Yes (Hospitalization)
  Sender: FDA-Public Use
  Company Number: CH-PFIZER INC-2015356902

PATIENT
  Age: 76 Year
  Sex: Male

DRUGS (33)
  1. MERONEM [Suspect]
     Active Substance: MEROPENEM
     Dosage: UNK
     Route: 040
     Dates: start: 20150711, end: 20150720
  2. TEMESTA /00273201/ [Concomitant]
     Active Substance: LORAZEPAM
     Dosage: 2.5 MG, UNK
     Dates: start: 20150723
  3. MIANSERIN [Concomitant]
     Active Substance: MIANSERIN
     Dosage: UNK
     Route: 048
  4. NOVALGIN [Concomitant]
     Active Substance: METAMIZOLE SODIUM
     Dosage: UNK
     Dates: start: 20150704, end: 20150706
  5. PANTOZOL [Concomitant]
     Active Substance: PANTOPRAZOLE SODIUM
     Dosage: UNK
     Route: 048
     Dates: start: 2015
  6. ZESTRIL [Concomitant]
     Active Substance: LISINOPRIL
     Dosage: UNK
     Route: 048
  7. CONCOR [Concomitant]
     Active Substance: BISOPROLOL FUMARATE
     Dosage: UNK
     Route: 048
  8. ADRENALIN /00003901/ [Concomitant]
     Dates: start: 20150714, end: 20150716
  9. NEOSTIGMIN /00045901/ [Concomitant]
     Dosage: UNK
     Dates: start: 20150707, end: 20150719
  10. CONDROSULF [Concomitant]
     Active Substance: CHONDROITIN SULFATE (CHICKEN)
  11. MYDOCALM /00293002/ [Concomitant]
     Dosage: UNK
  12. DIFLUCAN [Suspect]
     Active Substance: FLUCONAZOLE
     Indication: FUNGAL TEST POSITIVE
     Dosage: UNK
     Route: 040
     Dates: start: 20150713, end: 20150720
  13. VANCOMYCIN [Suspect]
     Active Substance: VANCOMYCIN
     Indication: WOUND
     Dosage: UNK
     Route: 040
     Dates: start: 20150704, end: 20150723
  14. CORDARON [Concomitant]
     Active Substance: AMIODARONE HYDROCHLORIDE
     Dosage: UNK
     Dates: start: 20150711, end: 20150718
  15. EBRANTIL /00631801/ [Concomitant]
     Active Substance: URAPIDIL
     Dosage: UNK
     Dates: start: 20150708, end: 20150711
  16. NORADRENALIN /00127501/ [Concomitant]
     Dosage: UNK
     Route: 041
     Dates: start: 20150705, end: 20150718
  17. SUFENTANIL [Concomitant]
     Active Substance: SUFENTANIL
     Dosage: UNK
     Dates: start: 20150705, end: 20150804
  18. WARFARIN [Concomitant]
     Active Substance: WARFARIN
     Dosage: UNK
  19. CIPROXIN /00697201/ [Suspect]
     Active Substance: CIPROFLOXACIN
     Dosage: UNK
     Dates: start: 20150721, end: 20150804
  20. PARACETAMOL [Concomitant]
     Active Substance: ACETAMINOPHEN
     Dosage: UNK
     Dates: start: 20150704, end: 20150706
  21. MIDAZOLAM [Concomitant]
     Active Substance: MIDAZOLAM\MIDAZOLAM HYDROCHLORIDE
     Dosage: UNK, SINGLE
     Dates: start: 20150711, end: 20150711
  22. CUBICIN [Suspect]
     Active Substance: DAPTOMYCIN
     Dosage: UNK
     Route: 040
     Dates: start: 20150724, end: 20150727
  23. PARACETAMOL [Concomitant]
     Active Substance: ACETAMINOPHEN
     Dosage: UNK
     Dates: start: 20150720, end: 20150804
  24. HEPARIN BICHSEL [Concomitant]
     Dosage: 26000 IU, 1X/DAY
     Route: 041
     Dates: start: 20150705
  25. DIPIPERON [Concomitant]
     Active Substance: PIPAMPERONE
     Dosage: UNK
     Dates: start: 20150723, end: 20150723
  26. ACTRAPID HM /00646004/ [Concomitant]
     Dosage: UNK
  27. NALOXON [Concomitant]
     Dosage: UNK
     Route: 048
     Dates: start: 20150708, end: 20150721
  28. TAZOBAC [Suspect]
     Active Substance: PIPERACILLIN SODIUM\TAZOBACTAM SODIUM
     Indication: WOUND
     Dosage: UNK
     Dates: start: 20150704, end: 20150711
  29. CRESTOR [Concomitant]
     Active Substance: ROSUVASTATIN CALCIUM
     Dosage: UNK
     Route: 048
  30. SOLU-CORTEF [Concomitant]
     Active Substance: HYDROCORTISONE SODIUM SUCCINATE
     Dosage: UNK
     Dates: start: 20150705, end: 20150706
  31. DOLOPHINE HYDROCHLORIDE [Concomitant]
     Active Substance: METHADONE HYDROCHLORIDE
     Dosage: 20 TO 30 GTT, UNK
     Route: 048
  32. PRADIF T [Concomitant]
     Active Substance: TAMSULOSIN HYDROCHLORIDE
     Dosage: UNK
  33. MARCOUMAR [Concomitant]
     Active Substance: PHENPROCOUMON
     Dosage: UNK

REACTIONS (4)
  - Transaminases abnormal [Recovered/Resolved]
  - Eosinophilia [Recovered/Resolved]
  - Rash [Recovered/Resolved]
  - Drug reaction with eosinophilia and systemic symptoms [Recovered/Resolved]

NARRATIVE: CASE EVENT DATE: 201507
